FAERS Safety Report 6568623-1 (Version None)
Quarter: 2010Q1

REPORT INFORMATION
  Report Type: 
  Country: None (occurrence: None)
  Receive Date: 20100128
  Receipt Date: 20100119
  Transmission Date: 20100710
  Serious: Yes (Life-Threatening, Hospitalization)
  Sender: FDA-Public Use
  Company Number: 220090J09GBR

PATIENT
  Age: 7 Year
  Sex: Female
  Weight: 23 kg

DRUGS (1)
  1. SAIZEN [Suspect]
     Dosage: 1.2 MG, 1 IN 1 DAYS
     Dates: start: 20091218

REACTIONS (3)
  - DEHYDRATION [None]
  - INFECTION [None]
  - VOMITING [None]
